FAERS Safety Report 4738029-6 (Version None)
Quarter: 2005Q3

REPORT INFORMATION
  Report Type: 
  Country: None (occurrence: None)
  Receive Date: 20050805
  Receipt Date: 20050805
  Transmission Date: 20060218
  Serious: Yes (Hospitalization)
  Sender: FDA-Public Use
  Company Number: None

PATIENT
  Age: 79 Year
  Sex: Male

DRUGS (1)
  1. METOPROLOL TARTRATE [Suspect]
     Indication: HYPERTENSION
     Dosage: 25 MG PO QD
     Route: 048

REACTIONS (6)
  - ASTHENIA [None]
  - BRADYCARDIA [None]
  - DYSPNOEA EXERTIONAL [None]
  - INCORRECT DOSE ADMINISTERED [None]
  - PITTING OEDEMA [None]
  - WEIGHT INCREASED [None]
